FAERS Safety Report 20307213 (Version 6)
Quarter: 2022Q2

REPORT INFORMATION
  Report Type: Other
  Country: CA (occurrence: None)
  Receive Date: 20220107
  Receipt Date: 20220530
  Transmission Date: 20220721
  Serious: Yes (Other)
  Sender: FDA-Public Use
  Company Number: CA-ROCHE-2993246

PATIENT
  Age: 36 Year
  Sex: Female

DRUGS (3)
  1. OCREVUS [Suspect]
     Active Substance: OCRELIZUMAB
     Indication: Relapsing-remitting multiple sclerosis
     Dosage: 300 MG AT DAY 0 AND 14, THEN 600 MG EVERY 6 MONTH, CONCENTRATE FOR INTRAVENOUS INFUSION
     Route: 042
     Dates: start: 20210623
  2. TYLENOL [Concomitant]
     Active Substance: ACETAMINOPHEN
  3. NAPROSYN [Concomitant]
     Active Substance: NAPROXEN

REACTIONS (5)
  - Polyp [Recovered/Resolved]
  - Haemorrhoids [Recovered/Resolved]
  - SARS-CoV-2 test positive [Not Recovered/Not Resolved]
  - Alopecia [Not Recovered/Not Resolved]
  - Smear cervix abnormal [Unknown]

NARRATIVE: CASE EVENT DATE: 20211225
